FAERS Safety Report 16381694 (Version 1)
Quarter: 2019Q2

REPORT INFORMATION
  Report Type: Report from Study
  Country: BR (occurrence: BR)
  Receive Date: 20190603
  Receipt Date: 20190603
  Transmission Date: 20190711
  Serious: Yes (Death, Hospitalization)
  Sender: FDA-Public Use
  Company Number: BR-SA-2019SA149644

PATIENT
  Age: 78 Year
  Sex: Female

DRUGS (2)
  1. INSULIN GLULISINE [Suspect]
     Active Substance: INSULIN GLULISINE
     Indication: TYPE 2 DIABETES MELLITUS
     Dosage: UNK
     Dates: start: 20190220, end: 20190220
  2. INSULIN GLARGINE [Suspect]
     Active Substance: INSULIN GLARGINE
     Indication: TYPE 2 DIABETES MELLITUS
     Dosage: 30 U, QD
     Route: 058
     Dates: start: 20190220, end: 20190220

REACTIONS (4)
  - Blood pressure abnormal [Fatal]
  - Diabetic metabolic decompensation [Fatal]
  - Daydreaming [Fatal]
  - Somnolence [Fatal]

NARRATIVE: CASE EVENT DATE: 20190220
